FAERS Safety Report 23284498 (Version 1)
Quarter: 2023Q4

REPORT INFORMATION
  Report Type: Spontaneous
  Country: US (occurrence: US)
  Receive Date: 20231211
  Receipt Date: 20231211
  Transmission Date: 20240109
  Serious: No
  Sender: FDA-Public Use
  Company Number: US-ABBVIE-5529347

PATIENT
  Age: 50 Year
  Sex: Female

DRUGS (1)
  1. BOTOX [Suspect]
     Active Substance: ONABOTULINUMTOXINA
     Indication: Migraine
     Dosage: TIME INTERVAL: AS NECESSARY: 200 INTERNATIONAL UNITS
     Route: 065
     Dates: start: 2020, end: 2020

REACTIONS (4)
  - Menopause [Recovered/Resolved]
  - Therapeutic response shortened [Recovered/Resolved]
  - Acne [Recovered/Resolved]
  - Flushing [Recovered/Resolved]
